FAERS Safety Report 4707105-6 (Version None)
Quarter: 2005Q3

REPORT INFORMATION
  Report Type: 
  Country: None (occurrence: None)
  Receive Date: 20050701
  Receipt Date: 20050620
  Transmission Date: 20060218
  Serious: Yes (Hospitalization, Other)
  Sender: FDA-Public Use
  Company Number: 2005026378

PATIENT
  Age: 59 Year
  Sex: Male
  Weight: 98 kg

DRUGS (5)
  1. CELEBREX [Suspect]
     Indication: OSTEOARTHRITIS
     Dosage: 200 MG (200 MG, 1 IN 1 D), ORAL
     Route: 048
     Dates: start: 20020601
  2. SIMVASTATIN (SIMVASTATIN0 [Concomitant]
  3. LAMICTIN (LAMOTRIGINE) [Concomitant]
  4. NEURONTIN [Concomitant]
  5. LUVOX [Concomitant]

REACTIONS (25)
  - ARTERIAL OCCLUSIVE DISEASE [None]
  - ARTHRALGIA [None]
  - ASTHMA [None]
  - BLOOD PRESSURE INCREASED [None]
  - BUNDLE BRANCH BLOCK LEFT [None]
  - CARDIAC INFECTION [None]
  - CARDIOMYOPATHY [None]
  - CONTRAINDICATION TO MEDICAL TREATMENT [None]
  - CORNEAL DISORDER [None]
  - CORONARY ARTERY DISEASE [None]
  - DEPRESSION [None]
  - EJECTION FRACTION DECREASED [None]
  - ELECTROCARDIOGRAM POOR R-WAVE PROGRESSION [None]
  - HEART RATE INCREASED [None]
  - HYPERCHOLESTEROLAEMIA [None]
  - IMPAIRED WORK ABILITY [None]
  - MOOD ALTERED [None]
  - MYOCARDIAL INFARCTION [None]
  - MYOCARDIAL ISCHAEMIA [None]
  - PSORIASIS [None]
  - QRS AXIS ABNORMAL [None]
  - VENTRICULAR ARRHYTHMIA [None]
  - VENTRICULAR HYPERTROPHY [None]
  - VENTRICULAR HYPOKINESIA [None]
  - VIRAL INFECTION [None]
